FAERS Safety Report 5910188-9 (Version None)
Quarter: 2008Q4

REPORT INFORMATION
  Report Type: 
  Country: None (occurrence: None)
  Receive Date: 20081007
  Receipt Date: 20071001
  Transmission Date: 20090506
  Serious: No
  Sender: FDA-Public Use
  Company Number: US-ASTRAZENECA-2007UW22947

PATIENT

DRUGS (2)
  1. ARIMIDEX [Suspect]
     Route: 048
  2. ANTIBIOTIC [Concomitant]

REACTIONS (1)
  - ASCITES [None]
